FAERS Safety Report 24818743 (Version 1)
Quarter: 2025Q1

REPORT INFORMATION
  Report Type: Spontaneous
  Country: IS (occurrence: IS)
  Receive Date: 20250108
  Receipt Date: 20250108
  Transmission Date: 20250408
  Serious: Yes (Other)
  Sender: ASCEND THERAPEUTICS US, LLC
  Company Number: IS-Ascend Therapeutics US, LLC-2162497

PATIENT
  Sex: Female

DRUGS (4)
  1. ESTROGEL [Suspect]
     Active Substance: ESTRADIOL
     Indication: Menopause
     Dates: start: 202207, end: 202407
  2. ESTROGEL [Suspect]
     Active Substance: ESTRADIOL
     Dates: start: 202207, end: 202407
  3. OXAZEPAM [Concomitant]
     Active Substance: OXAZEPAM
  4. ESTRADIOL [Concomitant]
     Active Substance: ESTRADIOL

REACTIONS (7)
  - Brain fog [Recovered/Resolved]
  - Asthenia [Recovered/Resolved]
  - Heart rate decreased [Recovered/Resolved]
  - Suicidal ideation [Recovered/Resolved]
  - Dyspnoea [Recovered/Resolved]
  - Fatigue [Recovered/Resolved]
  - Mental fatigue [Recovered/Resolved]
